FAERS Safety Report 25889684 (Version 1)
Quarter: 2025Q4

REPORT INFORMATION
  Report Type: Spontaneous
  Country: US (occurrence: US)
  Receive Date: 20251007
  Receipt Date: 20251007
  Transmission Date: 20260117
  Serious: No
  Sender: CIPLA
  Company Number: US-CIPLA LTD.-2025US12177

PATIENT

DRUGS (3)
  1. ALBUTEROL [Suspect]
     Active Substance: ALBUTEROL
     Indication: Dyspnoea
     Dosage: UNK, PRN (AS NEEDED TWICE A DAY)
     Dates: start: 202505
  2. ALBUTEROL [Suspect]
     Active Substance: ALBUTEROL
     Indication: Chronic obstructive pulmonary disease
  3. ALBUTEROL [Suspect]
     Active Substance: ALBUTEROL
     Indication: Oropharyngeal discomfort

REACTIONS (4)
  - Dyspnoea [Unknown]
  - Weight decreased [Not Recovered/Not Resolved]
  - Recalled product administered [Unknown]
  - Nasopharyngitis [Not Recovered/Not Resolved]

NARRATIVE: CASE EVENT DATE: 20250101
